FAERS Safety Report 15497113 (Version 3)
Quarter: 2019Q2

REPORT INFORMATION
  Report Type: Report from Study
  Country: US (occurrence: US)
  Receive Date: 20181015
  Receipt Date: 20190505
  Transmission Date: 20190711
  Serious: No
  Sender: FDA-Public Use
  Company Number: PHEH2018US042282

PATIENT
  Age: 14 Year
  Sex: Female

DRUGS (1)
  1. AFINITOR [Suspect]
     Active Substance: EVEROLIMUS
     Indication: ASTROCYTOMA, LOW GRADE
     Dosage: 10 MG, QD
     Route: 048
     Dates: start: 20140406

REACTIONS (7)
  - Swelling face [Recovered/Resolved]
  - Salivary gland enlargement [Unknown]
  - Menstruation irregular [Unknown]
  - Cough [Unknown]
  - Stomatitis [Unknown]
  - Toothache [Unknown]
  - Allergy to plants [Unknown]

NARRATIVE: CASE EVENT DATE: 20180306
